FAERS Safety Report 12656571 (Version 1)
Quarter: 2016Q3

REPORT INFORMATION
  Report Type: Spontaneous
  Country: IT (occurrence: IT)
  Receive Date: 20160816
  Receipt Date: 20160816
  Transmission Date: 20161109
  Serious: Yes (Disabling)
  Sender: FDA-Public Use
  Company Number: PHHY2016IT111354

PATIENT
  Age: 69 Year
  Sex: Female

DRUGS (2)
  1. BEVACIZUMAB [Suspect]
     Active Substance: BEVACIZUMAB
     Indication: METASTASES TO BONE
     Dosage: UNK
     Route: 065
     Dates: start: 20120401, end: 20120901
  2. ZOMETA [Suspect]
     Active Substance: ZOLEDRONIC ACID
     Indication: PRODUCT USED FOR UNKNOWN INDICATION
     Dosage: 4 MG, CYCLIC
     Route: 065
     Dates: start: 20130801, end: 20140301

REACTIONS (3)
  - Osteonecrosis of jaw [Unknown]
  - Mucosal inflammation [Unknown]
  - Purulent discharge [Unknown]

NARRATIVE: CASE EVENT DATE: 20150801
